FAERS Safety Report 5519214-2 (Version None)
Quarter: 2007Q4

REPORT INFORMATION
  Report Type: 
  Country: None (occurrence: None)
  Receive Date: 20071116
  Receipt Date: 20071104
  Transmission Date: 20080405
  Serious: Yes (Other)
  Sender: FDA-Public Use
  Company Number: IN-KINGPHARMUSA00001-K200701428

PATIENT

DRUGS (2)
  1. THALITONE TABLETS [Suspect]
     Indication: HYPERTENSION
     Dosage: 12.5 MG, UNK
  2. ATENOLOL [Suspect]
     Dosage: 50 MG, UNK

REACTIONS (7)
  - BLINDNESS [None]
  - CHOROIDAL EFFUSION [None]
  - CILIARY MUSCLE SPASM [None]
  - MACULOPATHY [None]
  - MYOPIA [None]
  - RETINAL DISORDER [None]
  - VISION BLURRED [None]
